FAERS Safety Report 9030408 (Version 1)
Quarter: 2013Q1

REPORT INFORMATION
  Report Type: Spontaneous
  Country: US (occurrence: US)
  Receive Date: 20130122
  Receipt Date: 20130122
  Transmission Date: 20140127
  Serious: No
  Sender: FDA-Public Use
  Company Number: US-VERTEX PHARMACEUTICALS INC.-2013-000850

PATIENT
  Age: 58 Year
  Sex: Female

DRUGS (5)
  1. INCIVEK [Suspect]
     Indication: HEPATITIS C
     Dosage: 750 MG, TID
     Route: 048
     Dates: start: 20121215
  2. INCIVEK [Suspect]
     Dosage: UNK
  3. RIBAVIRIN [Suspect]
     Indication: HEPATITIS C
     Dosage: 600 MG, BID
     Dates: start: 20121215, end: 20130115
  4. RIBAVIRIN [Suspect]
     Dosage: 300 MG, BID
     Dates: start: 20130116
  5. PEGINTERFERON [Suspect]
     Indication: HEPATITIS C
     Dosage: 180 ?G,QW
     Dates: start: 20121215

REACTIONS (1)
  - Laboratory test abnormal [Not Recovered/Not Resolved]
